FAERS Safety Report 6815147-X (Version None)
Quarter: 2010Q3

REPORT INFORMATION
  Report Type: 
  Country: None (occurrence: None)
  Receive Date: 20100702
  Receipt Date: 20100630
  Transmission Date: 20110219
  Serious: Yes (Hospitalization, Other)
  Sender: FDA-Public Use
  Company Number: PHBS2008AR06650

PATIENT
  Age: 22 Year
  Sex: Female

DRUGS (5)
  1. PAMIDRONATE DISODIUM [Suspect]
     Indication: SPINAL FRACTURE
     Dosage: 60 MG, Q3MO
     Route: 042
  2. PAMIDRONATE DISODIUM [Suspect]
     Indication: BONE DENSITY DECREASED
  3. CALCIUM CARBONATE [Concomitant]
     Dosage: 500 MG/DAY
  4. VITAMIN D [Concomitant]
     Dosage: 800 IU/DAY
  5. IMIGLUCERASE [Concomitant]
     Dosage: 60 U/KG FOR 15 DAYS

REACTIONS (4)
  - CAESAREAN SECTION [None]
  - DRUG EXPOSURE DURING PREGNANCY [None]
  - DRUG EXPOSURE VIA BREAST MILK [None]
  - PRE-ECLAMPSIA [None]
